FAERS Safety Report 5824145-4 (Version None)
Quarter: 2008Q3

REPORT INFORMATION
  Report Type: 
  Country: None (occurrence: None)
  Receive Date: 20080728
  Receipt Date: 20080718
  Transmission Date: 20090109
  Serious: Yes (Hospitalization)
  Sender: FDA-Public Use
  Company Number: US-ROCHE-568363

PATIENT
  Sex: Female

DRUGS (2)
  1. PEG-INTERFERON A-2A (RO 25-8310) [Suspect]
     Dosage: FORMULATION: PREFILLED SYRINGE
     Route: 065
     Dates: start: 20080303, end: 20080324
  2. RIBAVIRIN [Suspect]
     Route: 065
     Dates: start: 20080303, end: 20080324

REACTIONS (2)
  - HAEMOPTYSIS [None]
  - PNEUMONIA [None]
